FAERS Safety Report 8493826-9 (Version None)
Quarter: 2012Q3

REPORT INFORMATION
  Report Type: 
  Country: None (occurrence: None)
  Receive Date: 20120706
  Receipt Date: 20120626
  Transmission Date: 20120928
  Serious: Yes (Death, Hospitalization)
  Sender: FDA-Public Use
  Company Number: PH-BAXTER-2012BAX003074

PATIENT
  Sex: Female

DRUGS (3)
  1. DIANEAL PD-2 W/ DEXTROSE 1.5% [Suspect]
     Route: 033
     Dates: start: 20110804
  2. DIANEAL PD-2 W/ DEXTROSE 4.25% [Suspect]
     Route: 033
     Dates: start: 20110804
  3. EXTRANEAL [Suspect]
     Route: 033
     Dates: start: 20110804

REACTIONS (8)
  - VOMITING [None]
  - SEPTIC SHOCK [None]
  - DIARRHOEA [None]
  - PNEUMONIA [None]
  - PERITONITIS [None]
  - NAUSEA [None]
  - PULMONARY OEDEMA [None]
  - MULTI-ORGAN FAILURE [None]
